FAERS Safety Report 11443429 (Version 1)
Quarter: 2015Q3

REPORT INFORMATION
  Report Type: Spontaneous
  Country: US (occurrence: US)
  Receive Date: 20150901
  Receipt Date: 20150901
  Transmission Date: 20151125
  Serious: No
  Sender: FDA-Public Use
  Company Number: US-AMGEN-USASP2015088090

PATIENT
  Age: 71 Year
  Sex: Male

DRUGS (8)
  1. NIACIN ER [Concomitant]
     Active Substance: NIACIN
     Dosage: 214/ 1000 MG
  2. VYTORIN [Concomitant]
     Active Substance: EZETIMIBE\SIMVASTATIN
     Dosage: 312 - 10/20 MG
  3. SULFASALAZINE. [Concomitant]
     Active Substance: SULFASALAZINE
     Dosage: 500 MG, UNK
  4. PREDNISONE. [Suspect]
     Active Substance: PREDNISONE
     Indication: RHEUMATOID ARTHRITIS
     Dosage: 1 MG, UNK
     Route: 065
  5. ENBREL [Suspect]
     Active Substance: ETANERCEPT
     Indication: RHEUMATOID ARTHRITIS
     Dosage: 50 MG, QWK
     Route: 058
     Dates: start: 20150324
  6. RIFAMPIN. [Concomitant]
     Active Substance: RIFAMPIN
     Dosage: 300 MG, UNK
  7. ATENOLOL. [Concomitant]
     Active Substance: ATENOLOL
     Dosage: Z/65 - 25 MG
  8. METHOTREXATE [Concomitant]
     Active Substance: METHOTREXATE
     Dosage: 2.5 MG, UNK

REACTIONS (1)
  - Adverse drug reaction [Unknown]
